FAERS Safety Report 9344649 (Version 1)
Quarter: 2013Q2

REPORT INFORMATION
  Report Type: Report from Study
  Country: AU (occurrence: AU)
  Receive Date: 20130612
  Receipt Date: 20130612
  Transmission Date: 20140414
  Serious: Yes (Other)
  Sender: FDA-Public Use
  Company Number: PHHY2011AU110165

PATIENT
  Age: 67 Year
  Sex: Male

DRUGS (2)
  1. EXJADE [Suspect]
     Indication: NON-HODGKIN^S LYMPHOMA
     Dosage: 1500 MG/DAY
     Route: 048
  2. EXJADE [Suspect]
     Dosage: 500 MG/DAY
     Route: 048
     Dates: start: 20111119

REACTIONS (9)
  - Prostate cancer [Unknown]
  - Second primary malignancy [Unknown]
  - Diabetes mellitus [Unknown]
  - Crohn^s disease [Unknown]
  - Renal failure [Unknown]
  - Listless [Unknown]
  - Serum ferritin increased [Unknown]
  - Diarrhoea [Unknown]
  - Fatigue [Unknown]
